FAERS Safety Report 6641692-6 (Version None)
Quarter: 2010Q1

REPORT INFORMATION
  Report Type: 
  Country: None (occurrence: None)
  Receive Date: 20100319
  Receipt Date: 20100305
  Transmission Date: 20100710
  Serious: Yes (Hospitalization)
  Sender: FDA-Public Use
  Company Number: US-RANBAXY-2010RR-32165

PATIENT
  Age: 41 Year
  Sex: Male

DRUGS (6)
  1. SERTRALINE HCL [Suspect]
     Indication: HYPERTENSION
     Dosage: 200 MG, UNK
  2. ARIPIPRAZOLE [Suspect]
     Indication: HYPERTENSION
     Dosage: 20 MG, UNK
  3. SERTRALINE HCL [Concomitant]
     Dosage: 100 MG, BID
  4. ARIPIPRAZOLE [Concomitant]
     Dosage: 20 MG, UNK
  5. SIMVASTATIN [Concomitant]
  6. AMLODIPINE [Concomitant]

REACTIONS (1)
  - MYXOEDEMA COMA [None]
